FAERS Safety Report 23177524 (Version 1)
Quarter: 2023Q4

REPORT INFORMATION
  Report Type: Spontaneous
  Country: US (occurrence: US)
  Receive Date: 20231113
  Receipt Date: 20231113
  Transmission Date: 20240109
  Serious: Yes (Hospitalization, Other)
  Sender: FDA-Public Use
  Company Number: US-CPL-003775

PATIENT
  Age: 69 Year
  Sex: Female

DRUGS (1)
  1. VENLAFAXINE [Suspect]
     Active Substance: VENLAFAXINE HYDROCHLORIDE
     Dosage: UNKNOWN QUANTITIES
     Route: 048

REACTIONS (9)
  - Intentional overdose [Unknown]
  - Generalised tonic-clonic seizure [Unknown]
  - Sinus tachycardia [Unknown]
  - Electrocardiogram QRS complex prolonged [Unknown]
  - Cardiotoxicity [Unknown]
  - Atrioventricular block first degree [Unknown]
  - Metabolic acidosis [Unknown]
  - Vomiting [Unknown]
  - Bundle branch block left [Unknown]
